FAERS Safety Report 19133556 (Version 4)
Quarter: 2021Q4

REPORT INFORMATION
  Report Type: Report from Study
  Country: US (occurrence: US)
  Receive Date: 20210414
  Receipt Date: 20211112
  Transmission Date: 20220304
  Serious: Yes (Hospitalization, Other)
  Sender: FDA-Public Use
  Company Number: US-AMGEN-USACT2021052866

PATIENT
  Age: 62 Year
  Sex: Male
  Weight: 87.5 kg

DRUGS (8)
  1. BLINATUMOMAB [Suspect]
     Active Substance: BLINATUMOMAB
     Indication: B precursor type acute leukaemia
     Dosage: 9 MCG/DAY ON DAYS 1-7, 28 MCG/DAY ON DAYS 8-28 (TOTAL DOSE 231 MCG)
     Route: 042
     Dates: start: 20201110, end: 20201122
  2. BLINATUMOMAB [Suspect]
     Active Substance: BLINATUMOMAB
     Dosage: 9 MCG/DAY ON DAYS 1-7, 28 MCG/DAY ON DAYS 8-28 (TOTAL DOSE 651 MICROGRAM)
     Route: 042
     Dates: start: 20201123
  3. BLINATUMOMAB [Suspect]
     Active Substance: BLINATUMOMAB
     Dosage: 28 MICROGRAM, QD
     Route: 042
     Dates: start: 20210209
  4. METHOTREXATE [Suspect]
     Active Substance: METHOTREXATE
     Indication: B precursor type acute leukaemia
     Dosage: 15 MILLIGRAM ON DAYS 1, 15, AND 29 (TOTAL DOSE 30 MG)
     Route: 037
  5. INOTUZUMAB OZOGAMICIN [Suspect]
     Active Substance: INOTUZUMAB OZOGAMICIN
     Indication: B precursor type acute leukaemia
     Dosage: 0.8 MG/M2 IV ON DAY 1 AND 0.5 MG/M2 IV ON DAYS 8 AND 15
     Route: 042
     Dates: end: 20201021
  6. IPILIMUMAB [Suspect]
     Active Substance: IPILIMUMAB
     Indication: Product used for unknown indication
     Route: 065
  7. NIVOLUMAB [Suspect]
     Active Substance: NIVOLUMAB
     Indication: Product used for unknown indication
     Route: 065
  8. DECADRON [Concomitant]
     Active Substance: DEXAMETHASONE
     Dosage: 20 MILLIGRAM
     Route: 042
     Dates: start: 20201123

REACTIONS (4)
  - Device occlusion [Recovered/Resolved]
  - Embolism [Recovered/Resolved]
  - Cytokine release syndrome [Recovered/Resolved]
  - Pyrexia [Unknown]

NARRATIVE: CASE EVENT DATE: 20201122
